FAERS Safety Report 6583644-0 (Version None)
Quarter: 2010Q1

REPORT INFORMATION
  Report Type: 
  Country: None (occurrence: None)
  Receive Date: 20100213
  Receipt Date: 20100213
  Transmission Date: 20100710
  Serious: Yes (Other)
  Sender: FDA-Public Use
  Company Number: None

PATIENT
  Sex: Male
  Weight: 84.1 kg

DRUGS (1)
  1. QVAR 40 [Suspect]
     Indication: ASTHMA
     Dosage: 1 PUFF TWICE/DAILY INHALATION
     Route: 055
     Dates: start: 20100129

REACTIONS (4)
  - DIZZINESS [None]
  - NAUSEA [None]
  - TINNITUS [None]
  - VOMITING [None]
